FAERS Safety Report 18343450 (Version 1)
Quarter: 2020Q4

REPORT INFORMATION
  Report Type: Report from Study
  Country: None (occurrence: PR)
  Receive Date: 20201005
  Receipt Date: 20201005
  Transmission Date: 20210113
  Serious: Yes (Death)
  Sender: FDA-Public Use
  Company Number: PR-ABBVIE-20K-131-3593735-00

PATIENT
  Age: 72 Year
  Sex: Male

DRUGS (1)
  1. VENCLEXTA [Suspect]
     Active Substance: VENETOCLAX
     Indication: ACUTE MYELOID LEUKAEMIA
     Route: 048
     Dates: start: 20181210

REACTIONS (1)
  - Infarction [Fatal]

NARRATIVE: CASE EVENT DATE: 20200926
